FAERS Safety Report 25293522 (Version 1)
Quarter: 2025Q2

REPORT INFORMATION
  Report Type: Spontaneous
  Country: US (occurrence: US)
  Receive Date: 20250510
  Receipt Date: 20250510
  Transmission Date: 20250717
  Serious: No
  Sender: SANOFI AVENTIS
  Company Number: US-SA-2025SA128884

PATIENT
  Age: 99 Year
  Sex: Male
  Weight: 61.23 kg

DRUGS (8)
  1. DUPIXENT [Suspect]
     Active Substance: DUPILUMAB
     Indication: Dermatitis atopic
     Dosage: 300 MG, QOW
     Route: 058
     Dates: start: 20230530
  2. SINGULAIR [Concomitant]
     Active Substance: MONTELUKAST SODIUM
  3. FERROUS SULFATE [Concomitant]
     Active Substance: FERROUS SULFATE
  4. ONE A DAY MEN^S [ASCORBIC ACID;CHROMIUM;COPPER;CYANOCOBALAMIN;FOLIC AC [Concomitant]
  5. IBUPROFEN [Concomitant]
     Active Substance: IBUPROFEN
  6. KETOCONAZOLE [Concomitant]
     Active Substance: KETOCONAZOLE
  7. TRIAMCINOLONE [Concomitant]
     Active Substance: TRIAMCINOLONE
  8. TACROLIMUS [Concomitant]
     Active Substance: TACROLIMUS

REACTIONS (2)
  - Injection site pain [Recovered/Resolved]
  - Pain [Recovered/Resolved]

NARRATIVE: CASE EVENT DATE: 20250326
